FAERS Safety Report 13641385 (Version 1)
Quarter: 2017Q2

REPORT INFORMATION
  Report Type: Spontaneous
  Country: US (occurrence: US)
  Receive Date: 20170610
  Receipt Date: 20170610
  Transmission Date: 20170830
  Serious: No
  Sender: FDA-Public Use
  Company Number: None

PATIENT
  Age: 42 Year
  Sex: Female
  Weight: 63.9 kg

DRUGS (3)
  1. CLOBETASOL PROPIONATE OINTMENT . [Suspect]
     Active Substance: CLOBETASOL PROPIONATE
     Indication: RASH
     Dosage: ?          OTHER STRENGTH:GM;?
     Route: 061
     Dates: start: 20170526, end: 20170602
  2. LO LO ESTROGEN BIRTH CONTROL [Concomitant]
  3. IBUPROFEN. [Concomitant]
     Active Substance: IBUPROFEN

REACTIONS (1)
  - Dyshidrotic eczema [None]

NARRATIVE: CASE EVENT DATE: 20170601
